FAERS Safety Report 18274943 (Version 2)
Quarter: 2020Q4

REPORT INFORMATION
  Report Type: Report from Study
  Country: US (occurrence: US)
  Receive Date: 20200916
  Receipt Date: 20201105
  Transmission Date: 20210113
  Serious: Yes (Other)
  Sender: FDA-Public Use
  Company Number: US-GILEAD-2020-0494756

PATIENT
  Sex: Male

DRUGS (3)
  1. TENOFOVIR DISOPROXIL FUMARATE. [Suspect]
     Active Substance: TENOFOVIR DISOPROXIL FUMARATE
     Indication: CHRONIC HEPATITIS B
     Dosage: 300 MG, QD
     Route: 048
     Dates: start: 2019
  2. SALICYLIC ACID. [Concomitant]
     Active Substance: SALICYLIC ACID
     Dosage: N/A
  3. ELIQUIS [Concomitant]
     Active Substance: APIXABAN
     Dosage: N/A

REACTIONS (13)
  - Loss of consciousness [Unknown]
  - Rib fracture [Unknown]
  - Hepatic pain [Unknown]
  - Tooth loss [Unknown]
  - Spinal fracture [Unknown]
  - Blood calcium decreased [Not Recovered/Not Resolved]
  - Pain [Not Recovered/Not Resolved]
  - Bronchitis viral [Unknown]
  - Cardiac disorder [Unknown]
  - Diabetes mellitus [Unknown]
  - Intervertebral disc protrusion [Unknown]
  - Blood glucose abnormal [Unknown]
  - Depression [Unknown]
